FAERS Safety Report 24692828 (Version 1)
Quarter: 2024Q4

REPORT INFORMATION
  Report Type: Spontaneous
  Country: CN (occurrence: CN)
  Receive Date: 20241203
  Receipt Date: 20241203
  Transmission Date: 20250115
  Serious: Yes (Other)
  Sender: DAIICHI
  Company Number: CN-DSJP-DS-2024-109795-CN

PATIENT
  Age: 25 Year
  Sex: Female
  Weight: 68 kg

DRUGS (1)
  1. ENHERTU [Suspect]
     Active Substance: FAM-TRASTUZUMAB DERUXTECAN-NXKI
     Indication: Neoplasm malignant
     Dosage: 400 MG, QD
     Route: 041
     Dates: start: 20240925, end: 20240925

REACTIONS (1)
  - Myelosuppression [Recovering/Resolving]

NARRATIVE: CASE EVENT DATE: 20241016
